FAERS Safety Report 5284019-7 (Version None)
Quarter: 2007Q2

REPORT INFORMATION
  Report Type: 
  Country: None (occurrence: None)
  Receive Date: 20070402
  Receipt Date: 20070321
  Transmission Date: 20071010
  Serious: Yes (Other)
  Sender: FDA-Public Use
  Company Number: US-PFIZER INC-2007022906

PATIENT

DRUGS (1)
  1. NARDIL [Suspect]
     Dosage: TEXT:UNKNOWN

REACTIONS (4)
  - HAEMORRHAGIC STROKE [None]
  - INSOMNIA [None]
  - RESPIRATORY DISORDER [None]
  - TEMPERATURE REGULATION DISORDER [None]
